FAERS Safety Report 8671583 (Version 2)
Quarter: 2013Q2

REPORT INFORMATION
  Report Type: Spontaneous
  Country: US (occurrence: None)
  Receive Date: 20120405
  Receipt Date: 20120628
  Transmission Date: 20140414
  Serious: Yes (Other)
  Sender: FDA-Public Use
  Company Number: PHHY2010US37578

PATIENT
  Age: 66 Year
  Sex: Female
  Weight: 109 kg

DRUGS (1)
  1. RECLAST [Suspect]
     Route: 042
     Dates: start: 20100628

REACTIONS (7)
  - EYE INFLAMMATION [None]
  - HEADACHE [None]
  - EYE PAIN [None]
  - INFLUENZA LIKE ILLNESS [None]
  - PAIN IN EXTREMITY [None]
  - BONE PAIN [None]
  - ARTHRALGIA [None]
